FAERS Safety Report 9902851 (Version 1)
Quarter: 2014Q1

REPORT INFORMATION
  Report Type: Spontaneous
  Country: NL (occurrence: NL)
  Receive Date: 20140217
  Receipt Date: 20140217
  Transmission Date: 20141002
  Serious: Yes (Other)
  Sender: FDA-Public Use
  Company Number: PHHY2014NL016888

PATIENT
  Sex: Female

DRUGS (3)
  1. 5-FLUOROURACIL [Suspect]
     Indication: BREAST CANCER
     Dosage: 500 MG/M2, UNK
  2. EPIRUBICIN [Suspect]
     Indication: BREAST CANCER
     Dosage: 120 MG/M2, UNK
  3. CYCLOPHOSPHAMIDE [Suspect]
     Indication: BREAST CANCER
     Dosage: 500 MG/M2, UNK

REACTIONS (1)
  - Ejection fraction decreased [Unknown]
